FAERS Safety Report 5745417-8 (Version None)
Quarter: 2008Q2

REPORT INFORMATION
  Report Type: 
  Country: None (occurrence: None)
  Receive Date: 20080521
  Receipt Date: 20080519
  Transmission Date: 20081010
  Serious: Yes (Other)
  Sender: FDA-Public Use
  Company Number: ES-BRISTOL-MYERS SQUIBB COMPANY-14197057

PATIENT
  Age: 70 Year
  Sex: Female

DRUGS (3)
  1. KARVEZIDE TABS 150MG/12.5MG [Suspect]
     Indication: HYPERTENSION
     Dosage: 1 DOSAGE FORM = 150/12.5MG/DAY. STARTED 300MG ON 19-MAY-07,AND THEN 150MG.
     Route: 048
     Dates: start: 20070519
  2. AIRTAL [Concomitant]
  3. SIMVASTATIN [Concomitant]

REACTIONS (1)
  - SERUM FERRITIN INCREASED [None]
